FAERS Safety Report 6655159-2 (Version None)
Quarter: 2010Q1

REPORT INFORMATION
  Report Type: 
  Country: None (occurrence: None)
  Receive Date: 20100329
  Receipt Date: 20100317
  Transmission Date: 20100710
  Serious: Yes (Death, Other)
  Sender: FDA-Public Use
  Company Number: JP-BAYER-200811808BYL

PATIENT
  Age: 72 Year
  Sex: Male
  Weight: 64 kg

DRUGS (9)
  1. NEXAVAR [Suspect]
     Indication: RENAL CELL CARCINOMA
     Dosage: UNIT DOSE: 200 MG
     Route: 048
     Dates: start: 20080314, end: 20080806
  2. DECADRON [Concomitant]
     Dosage: 1-2MG/DAY
     Route: 048
     Dates: start: 20071228, end: 20080423
  3. OMEPRAL [Concomitant]
     Dosage: AS USED: 20 MG
     Route: 048
     Dates: start: 20080502
  4. MEXITIL [Concomitant]
     Dosage: TOTAL DAILY DOSE: 150 MG  UNIT DOSE: 50 MG
     Route: 048
     Dates: start: 20080303, end: 20080401
  5. PROCHLORPERAZINE [Concomitant]
     Dosage: TOTAL DAILY DOSE: 10 MG  UNIT DOSE: 5 MG
     Route: 048
     Dates: start: 20080328, end: 20080401
  6. MYSLEE [Concomitant]
     Dosage: TOTAL DAILY DOSE: 5 MG  UNIT DOSE: 5 MG
     Route: 048
     Dates: start: 20080303, end: 20080401
  7. CALONAL [Concomitant]
     Dosage: TOTAL DAILY DOSE: 2400 MG  UNIT DOSE: 300 MG
     Route: 048
     Dates: start: 20080526
  8. FENTANYL CITRATE [Concomitant]
     Dosage: 7.5-10MG/DAY
     Route: 062
     Dates: start: 20080404
  9. OXYCONTIN [Concomitant]
     Dosage: 10-180MG/DAY
     Route: 048
     Dates: start: 20071228, end: 20080403

REACTIONS (8)
  - GASTROINTESTINAL HAEMORRHAGE [None]
  - GASTROINTESTINAL PERFORATION [None]
  - HYPERTENSION [None]
  - HYPOPHOSPHATAEMIA [None]
  - PALMAR-PLANTAR ERYTHRODYSAESTHESIA SYNDROME [None]
  - PERITONITIS [None]
  - PNEUMONIA [None]
  - RASH [None]
